FAERS Safety Report 14569349 (Version 2)
Quarter: 2018Q1

REPORT INFORMATION
  Report Type: Report from Study
  Country: NL (occurrence: NL)
  Receive Date: 20180223
  Receipt Date: 20180327
  Transmission Date: 20180509
  Serious: Yes (Other)
  Sender: FDA-Public Use
  Company Number: NL-BIOMARINAP-NL-2018-117107

PATIENT
  Age: 11 Year
  Sex: Female

DRUGS (1)
  1. NAGLAZYME [Suspect]
     Active Substance: GALSULFASE
     Indication: MUCOPOLYSACCHARIDOSIS VI
     Dosage: 1 MG/KG, QW
     Route: 042

REACTIONS (1)
  - Aortic valve incompetence [Recovered/Resolved]

NARRATIVE: CASE EVENT DATE: 20120613
